FAERS Safety Report 14490806 (Version 1)
Quarter: 2018Q1

REPORT INFORMATION
  Report Type: Spontaneous
  Country: RO (occurrence: RO)
  Receive Date: 20180206
  Receipt Date: 20180206
  Transmission Date: 20180509
  Serious: Yes (Hospitalization)
  Sender: FDA-Public Use
  Company Number: RO-STRIDES ARCOLAB LIMITED-2018SP000738

PATIENT

DRUGS (2)
  1. OMEGA-3-ACID ETHYL ESTERS. [Suspect]
     Active Substance: OMEGA-3-ACID ETHYL ESTERS
     Indication: TYPE V HYPERLIPIDAEMIA
     Dosage: UNK
     Route: 065
  2. OMEGA-3-ACID ETHYL ESTERS. [Suspect]
     Active Substance: OMEGA-3-ACID ETHYL ESTERS
     Indication: HYPERTRIGLYCERIDAEMIA

REACTIONS (2)
  - Rhabdomyolysis [Recovered/Resolved]
  - Hepatocellular injury [Recovered/Resolved]
